FAERS Safety Report 8870332 (Version 1)
Quarter: 2012Q4

REPORT INFORMATION
  Report Type: 
  Country: US (occurrence: US)
  Receive Date: 20121026
  Receipt Date: 20121026
  Transmission Date: 20130627
  Serious: No
  Sender: FDA-Public Use
  Company Number: US-AMGEN-USASP2012043468

PATIENT
  Sex: Female

DRUGS (15)
  1. ENBREL [Suspect]
     Indication: PRODUCT USED FOR UNKNOWN INDICATION
     Dosage: 50 mg, qwk
     Route: 058
  2. AMLODIPINE [Concomitant]
     Dosage: 5 mg, UNK
  3. RAMIPRIL [Concomitant]
     Dosage: 10 mg, UNK
  4. ROPINIROLE [Concomitant]
     Dosage: 0.25 mg, UNK
  5. ZYRTEC [Concomitant]
     Dosage: 10 mg, UNK
  6. SIMVASTATIN [Concomitant]
     Dosage: 40 mg, UNK
  7. ETODOLAC [Concomitant]
     Dosage: 500 mg, UNK
  8. VITAMIN E                          /00110501/ [Concomitant]
     Dosage: 1000 unit, UNK
  9. SYMBICORT [Concomitant]
     Dosage: UNK, 160-4.5
  10. ZAFIRLUKAST [Concomitant]
     Dosage: 10 mg, UNK
  11. METOPROL ZOK MEPHA [Concomitant]
     Dosage: 25 mg, UNK
  12. VITAMIN B-12 [Concomitant]
     Dosage: 1000 MCG, UNK
  13. FISH OIL [Concomitant]
  14. OSTEO BI-FLEX [Concomitant]
  15. CALCIUM D                          /00944201/ [Concomitant]

REACTIONS (2)
  - Synovial cyst [Unknown]
  - Injection site pain [Unknown]
